FAERS Safety Report 8023577-6 (Version None)
Quarter: 2012Q1

REPORT INFORMATION
  Report Type: 
  Country: None (occurrence: None)
  Receive Date: 20120105
  Receipt Date: 20111226
  Transmission Date: 20120608
  Serious: Yes (Other)
  Sender: FDA-Public Use
  Company Number: AU-BRISTOL-MYERS SQUIBB COMPANY-16315400

PATIENT
  Age: 52 Year
  Sex: Female

DRUGS (6)
  1. FLUVASTATIN [Suspect]
  2. CARBAMAZEPINE [Suspect]
  3. METFORMIN HCL [Suspect]
     Indication: TYPE 2 DIABETES MELLITUS
  4. ENALAPRIL MALEATE [Suspect]
     Indication: HYPERTENSION
  5. FLUOXETINE HCL [Suspect]
  6. TOLBUTAMIDE [Suspect]

REACTIONS (1)
  - LIVER INJURY [None]
